FAERS Safety Report 8524232-6 (Version None)
Quarter: 2012Q3

REPORT INFORMATION
  Report Type: 
  Country: None (occurrence: None)
  Receive Date: 20120720
  Receipt Date: 20120711
  Transmission Date: 20120928
  Serious: Yes (Death, Other)
  Sender: FDA-Public Use
  Company Number: US-SANOFI-AVENTIS-2012SA049636

PATIENT
  Age: 66 Year
  Sex: Male

DRUGS (1)
  1. PLAVIX [Suspect]
     Route: 048

REACTIONS (13)
  - PERIPHERAL VASCULAR DISORDER [None]
  - RESPIRATORY DEPRESSION [None]
  - MYOCARDIAL INFARCTION [None]
  - VOMITING [None]
  - CEREBROVASCULAR ACCIDENT [None]
  - HYPERLIPIDAEMIA [None]
  - HYPOKALAEMIA [None]
  - OESOPHAGEAL CARCINOMA [None]
  - DEATH [None]
  - PNEUMONIA [None]
  - SEPSIS [None]
  - DYSPHAGIA [None]
  - ANAEMIA [None]
